FAERS Safety Report 7312223-2 (Version None)
Quarter: 2011Q1

REPORT INFORMATION
  Report Type: 
  Country: None (occurrence: None)
  Receive Date: 20110224
  Receipt Date: 20110214
  Transmission Date: 20110831
  Serious: Yes (Hospitalization)
  Sender: FDA-Public Use
  Company Number: A0897798A

PATIENT
  Age: 64 Year
  Sex: Male

DRUGS (1)
  1. AVANDIA [Suspect]
     Indication: DIABETES MELLITUS
     Route: 048
     Dates: start: 20040901, end: 20070501

REACTIONS (5)
  - CEREBROVASCULAR ACCIDENT [None]
  - DIZZINESS [None]
  - FLUID OVERLOAD [None]
  - CARDIAC ARREST [None]
  - HEART INJURY [None]
